FAERS Safety Report 13167528 (Version 2)
Quarter: 2017Q1

REPORT INFORMATION
  Report Type: Spontaneous
  Country: US (occurrence: US)
  Receive Date: 20170131
  Receipt Date: 20170215
  Transmission Date: 20170428
  Serious: No
  Sender: FDA-Public Use
  Company Number: US-PFIZER INC-2017038375

PATIENT
  Age: 62 Year
  Sex: Female

DRUGS (1)
  1. IBRANCE [Suspect]
     Active Substance: PALBOCICLIB
     Dosage: 125 MG, CYCLIC, (TAKE 1 CAPSULE BY MOUTH DAILY FOR 21 DAYS ON AND 1 WEEK OFF)
     Route: 048
     Dates: start: 201611

REACTIONS (1)
  - Abdominal discomfort [Unknown]
